FAERS Safety Report 11850699 (Version 1)
Quarter: 2015Q4

REPORT INFORMATION
  Report Type: Other
  Country: GB (occurrence: GB)
  Receive Date: 20151218
  Receipt Date: 20151218
  Transmission Date: 20160305
  Serious: Yes (Other)
  Sender: FDA-Public Use
  Company Number: GB-PERRIGO-15GB013089

PATIENT

DRUGS (2)
  1. PROCHLORPEMAZINE [Concomitant]
     Indication: PRODUCT USED FOR UNKNOWN INDICATION
     Dosage: UNK
     Route: 065
  2. RANITIDINE HYDROCHLORIDE 16028/0122 83.75 MG [Suspect]
     Active Substance: RANITIDINE HYDROCHLORIDE
     Indication: PRODUCT USED FOR UNKNOWN INDICATION
     Dosage: 1 DF, QD
     Route: 048
     Dates: start: 20151130

REACTIONS (2)
  - Inflammation [Recovering/Resolving]
  - Pruritus [Not Recovered/Not Resolved]

NARRATIVE: CASE EVENT DATE: 20151201
